FAERS Safety Report 4556384-7 (Version None)
Quarter: 2005Q1

REPORT INFORMATION
  Report Type: 
  Country: None (occurrence: None)
  Receive Date: 20050110
  Receipt Date: 20041022
  Transmission Date: 20050727
  Serious: Yes (Death)
  Sender: FDA-Public Use
  Company Number: HCDA20040004

PATIENT

DRUGS (3)
  1. HYDROCODONE BITARTRATE + ACETAMINOPHEN [Suspect]
     Dosage: PO/INHALE
     Route: 048
  2. THEOPHYLLINE [Suspect]
     Dosage: PO/INHALE
  3. MIRTAZAPINE [Suspect]
     Dosage: PO/INHALE
     Route: 048

REACTIONS (3)
  - ASPIRATION [None]
  - COMPLETED SUICIDE [None]
  - OVERDOSE [None]
